FAERS Safety Report 5162883-X (Version None)
Quarter: 2006Q4

REPORT INFORMATION
  Report Type: 
  Country: None (occurrence: None)
  Receive Date: 20061201
  Receipt Date: 19990203
  Transmission Date: 20070319
  Serious: Yes (Hospitalization)
  Sender: FDA-Public Use
  Company Number: 113217

PATIENT
  Age: 46 Year
  Sex: Female

DRUGS (1)
  1. LARIAM [Suspect]
     Indication: MALARIA PROPHYLAXIS
     Route: 048
     Dates: start: 19971226, end: 19980215

REACTIONS (17)
  - ABDOMINAL DISTENSION [None]
  - ALCOHOL USE [None]
  - ANOREXIA [None]
  - DEHYDRATION [None]
  - DEPRESSION [None]
  - DIARRHOEA [None]
  - DRUG TOXICITY [None]
  - GASTROENTERITIS [None]
  - GRAVITATIONAL OEDEMA [None]
  - HEPATIC FAILURE [None]
  - HEPATIC STEATOSIS [None]
  - HEPATOMEGALY [None]
  - METABOLIC DISORDER [None]
  - NAUSEA [None]
  - NERVOUSNESS [None]
  - VOMITING [None]
  - WEIGHT DECREASED [None]
